FAERS Safety Report 7940873-9 (Version None)
Quarter: 2011Q4

REPORT INFORMATION
  Report Type: 
  Country: None (occurrence: None)
  Receive Date: 20111128
  Receipt Date: 20111117
  Transmission Date: 20120403
  Serious: Yes (Other)
  Sender: FDA-Public Use
  Company Number: JP-JNJFOC-20111108749

PATIENT
  Age: 71 Year
  Sex: Male

DRUGS (9)
  1. REMICADE [Suspect]
     Indication: RHEUMATOID ARTHRITIS
     Dosage: 13TH INFUSION
     Route: 042
     Dates: start: 20110901
  2. METHOTREXATE [Suspect]
     Route: 048
     Dates: start: 20100101
  3. REMICADE [Suspect]
     Route: 042
  4. REMICADE [Suspect]
     Route: 042
     Dates: start: 20110707
  5. METHOTREXATE [Suspect]
     Route: 048
     Dates: end: 20110706
  6. ISONIAZID [Concomitant]
     Route: 065
     Dates: start: 20101001
  7. METHOTREXATE [Suspect]
     Indication: PRODUCT USED FOR UNKNOWN INDICATION
     Route: 048
     Dates: start: 20110701, end: 20111001
  8. PREDNISOLONE [Suspect]
     Indication: PRODUCT USED FOR UNKNOWN INDICATION
     Route: 048
  9. REMICADE [Suspect]
     Route: 042
     Dates: start: 20100121

REACTIONS (1)
  - TUBERCULOSIS [None]
